FAERS Safety Report 9829265 (Version 1)
Quarter: 2014Q1

REPORT INFORMATION
  Report Type: Report from Study
  Country: US (occurrence: US)
  Receive Date: 20140120
  Receipt Date: 20140120
  Transmission Date: 20141002
  Serious: Yes (Death)
  Sender: FDA-Public Use
  Company Number: US-ROCHE-1335865

PATIENT
  Sex: Female
  Weight: 74.91 kg

DRUGS (10)
  1. AVASTIN [Suspect]
     Indication: LUNG NEOPLASM MALIGNANT
     Dosage: 750MG IN 100ML NORMAL SALINE OVER 90MINUTES DAY 1 WHICH MAY BE SHORTENED IN SUBSEQUENT INFUSION TO 6
     Route: 042
     Dates: start: 20110125
  2. TARCEVA [Suspect]
     Indication: LUNG NEOPLASM MALIGNANT
     Route: 065
  3. CISPLATIN [Concomitant]
  4. TAXOTERE [Concomitant]
  5. NAVELBINE [Concomitant]
     Dosage: 55MG IN 100ML NORMAL SALINE OVER 6 TO 10MINS THROUGH INTRAVENOUS DAYS 1 TO 8
     Route: 042
  6. COMPAZINE [Concomitant]
     Route: 048
  7. ONDANSETRON [Concomitant]
     Route: 042
  8. GEMCITABINE [Concomitant]
  9. PROCRIT [Concomitant]
     Dosage: 25 JAN 2011 AND 01 FEB 2011
     Route: 058
  10. NEULASTA [Concomitant]
     Route: 065
     Dates: start: 2010

REACTIONS (1)
  - Death [Fatal]
